FAERS Safety Report 5921096-1 (Version None)
Quarter: 2008Q4

REPORT INFORMATION
  Report Type: 
  Country: None (occurrence: None)
  Receive Date: 20081016
  Receipt Date: 20081006
  Transmission Date: 20090506
  Serious: Yes (Hospitalization)
  Sender: FDA-Public Use
  Company Number: FR-PFIZER INC-2008086127

PATIENT
  Sex: Male

DRUGS (5)
  1. ATARAX [Suspect]
     Indication: PSYCHOTIC DISORDER
     Dosage: DAILY DOSE:250MG
     Route: 048
     Dates: end: 20080810
  2. THERALENE [Suspect]
     Indication: PSYCHOTIC DISORDER
     Route: 048
     Dates: end: 20080810
  3. RISPERDAL [Suspect]
     Indication: PSYCHOTIC DISORDER
     Route: 030
     Dates: end: 20080805
  4. MEPRONIZINE [Suspect]
     Indication: PSYCHOTIC DISORDER
     Dosage: TEXT:2 DOSE FORM
     Route: 048
     Dates: end: 20080810
  5. NEXIUM [Concomitant]

REACTIONS (1)
  - NEUROLEPTIC MALIGNANT SYNDROME [None]
